FAERS Safety Report 9003133 (Version 1)
Quarter: 2013Q1

REPORT INFORMATION
  Report Type: Spontaneous
  Country: US (occurrence: US)
  Receive Date: 20130108
  Receipt Date: 20130108
  Transmission Date: 20140127
  Serious: Yes (Death)
  Sender: FDA-Public Use
  Company Number: US-BAYER-2013-001925

PATIENT
  Age: 44 Year
  Sex: Female

DRUGS (7)
  1. DIPHENHYDRAMINE HYDROCHLORIDE [Suspect]
  2. OXYCODONE [Suspect]
  3. AMITRIPTYLINE [Suspect]
  4. ZOLPIDEM [Suspect]
  5. DIAZEPAM [Suspect]
  6. PAROXETINE [Suspect]
  7. LORAZEPAM [Suspect]

REACTIONS (1)
  - Drug abuse [Fatal]
